FAERS Safety Report 10362464 (Version 1)
Quarter: 2014Q1

REPORT INFORMATION
  Report Type: Spontaneous
  Country: US (occurrence: None)
  Receive Date: 20140306
  Receipt Date: 20140306
  Transmission Date: 20141002
  Serious: Yes (Other)
  Sender: FDA-Public Use
  Company Number: 163-21880-13051620

PATIENT
  Age: 74 Year
  Sex: Male
  Weight: 68.04 kg

DRUGS (4)
  1. REVLIMID [Suspect]
     Indication: MYELODYSPLASTIC SYNDROME
     Dosage: 10 MG, 28 IN 28 D, PO
     Route: 048
     Dates: start: 20130418, end: 2013
  2. PREDNISOLONE (PREDNISOLONE) (UNKNOWN) [Concomitant]
  3. PROBENECID (PROBENECID) (UNKNOWN) [Concomitant]
  4. WARFARIN (WARFARIN) (UNKNOWN) [Concomitant]

REACTIONS (2)
  - Angioedema [None]
  - Skin disorder [None]
